FAERS Safety Report 6472446-1 (Version None)
Quarter: 2009Q4

REPORT INFORMATION
  Report Type: 
  Country: None (occurrence: None)
  Receive Date: 20091201
  Receipt Date: 20091116
  Transmission Date: 20100525
  Serious: Yes (Hospitalization)
  Sender: FDA-Public Use
  Company Number: 2009AP004593

PATIENT
  Age: 80 Year
  Sex: Male

DRUGS (5)
  1. DOXAZOSIN MESYLATE [Suspect]
     Indication: HYPERTENSION
     Dosage: 4 MG; QD; PO
     Route: 048
     Dates: end: 20091026
  2. DOXAZOSIN MESYLATE [Suspect]
     Indication: PROSTATE INFECTION
     Dosage: 4 MG; QD; PO
     Route: 048
     Dates: end: 20091026
  3. FLOMAX [Suspect]
  4. ATORVASTATIN CALCIUM [Concomitant]
  5. ACETYLSALICYLIC ACID [Concomitant]

REACTIONS (4)
  - CHEST DISCOMFORT [None]
  - DIZZINESS [None]
  - DYSPNOEA [None]
  - HEADACHE [None]
